FAERS Safety Report 9852518 (Version 1)
Quarter: 2014Q1

REPORT INFORMATION
  Report Type: Spontaneous
  Country: FR (occurrence: FR)
  Receive Date: 20140129
  Receipt Date: 20140129
  Transmission Date: 20141002
  Serious: Yes (Hospitalization)
  Sender: FDA-Public Use
  Company Number: FR-VERTEX PHARMACEUTICALS INC-2014-000421

PATIENT
  Age: 49 Year
  Sex: Male

DRUGS (29)
  1. INCIVO [Suspect]
     Indication: HEPATITIS C
     Dates: start: 20130902, end: 20131224
  2. PEGASYS [Suspect]
     Indication: HEPATITIS C
     Dates: start: 20130902, end: 20131224
  3. COPEGUS [Suspect]
     Indication: HEPATITIS C
     Dates: start: 20130902, end: 20131224
  4. NORVIR [Concomitant]
     Indication: HEPATITIS C
  5. NORVIR [Concomitant]
     Indication: HIV INFECTION
  6. VIREAD [Concomitant]
     Indication: HEPATITIS C
  7. VIREAD [Concomitant]
     Indication: HIV INFECTION
  8. ISENTRESS [Concomitant]
     Indication: HEPATITIS C
  9. ISENTRESS [Concomitant]
     Indication: HIV INFECTION
  10. PREZISTA [Concomitant]
     Indication: HEPATITIS C
  11. PREZISTA [Concomitant]
     Indication: HIV INFECTION
  12. ZOPICLONE [Concomitant]
     Indication: HEPATITIS C
  13. ZOPICLONE [Concomitant]
     Indication: HIV INFECTION
  14. TITANOREINE (NOS) [Concomitant]
     Indication: HEPATITIS C
  15. TITANOREINE (NOS) [Concomitant]
     Indication: HIV INFECTION
  16. LOPERAMIDE [Concomitant]
     Indication: HEPATITIS C
  17. LOPERAMIDE [Concomitant]
     Indication: HIV INFECTION
  18. CIALIS [Concomitant]
     Indication: HEPATITIS C
  19. CIALIS [Concomitant]
     Indication: HIV INFECTION
  20. CIRKAN [Concomitant]
     Indication: HEPATITIS C
  21. CIRKAN [Concomitant]
     Indication: HIV INFECTION
  22. DAFALGAN [Concomitant]
     Indication: HEPATITIS C
  23. DAFALGAN [Concomitant]
     Indication: HIV INFECTION
  24. DAFLON [Concomitant]
     Indication: HEPATITIS C
  25. DAFLON [Concomitant]
     Indication: HIV INFECTION
  26. AZADOSE [Concomitant]
     Indication: HEPATITIS C
  27. AZADOSE [Concomitant]
     Indication: HIV INFECTION
  28. OMEPRAZOLE [Concomitant]
     Indication: HEPATITIS C
  29. OMEPRAZOLE [Concomitant]
     Indication: HIV INFECTION

REACTIONS (4)
  - Muscular weakness [Recovered/Resolved]
  - Amyotrophy [Recovered/Resolved]
  - Gingivitis [Recovered/Resolved]
  - Off label use [Unknown]
